FAERS Safety Report 10037856 (Version 1)
Quarter: 2014Q1

REPORT INFORMATION
  Report Type: Spontaneous
  Country: GB (occurrence: GB)
  Receive Date: 20140326
  Receipt Date: 20140326
  Transmission Date: 20141002
  Serious: Yes (Death, Hospitalization)
  Sender: FDA-Public Use
  Company Number: PHHY2014GB032897

PATIENT
  Age: 2 Year
  Sex: Female

DRUGS (12)
  1. CICLOSPORIN [Suspect]
     Indication: IMMUNOSUPPRESSION
  2. INTERLEUKIN-2 [Suspect]
     Indication: ACUTE MYELOID LEUKAEMIA
     Dosage: 9000000 IU/M2 FOR 4 DAYS
     Route: 041
  3. INTERLEUKIN-2 [Suspect]
     Dosage: 3000000 IU/M2 PER DAY
  4. PREDNISONE [Suspect]
     Indication: IMMUNOSUPPRESSION
  5. TACROLIMUS [Suspect]
     Indication: GRAFT VERSUS HOST DISEASE
  6. ANAESTHETICS [Suspect]
  7. FLUDARABINE [Concomitant]
     Dosage: 5 MG/KG
  8. FLUDARABINE [Concomitant]
  9. CYTARABINE [Concomitant]
     Dosage: 20 MG/KG
  10. CYTARABINE [Concomitant]
     Dosage: 40 MG/KG
  11. CYTOXAN [Concomitant]
     Dosage: 20 MG/KG
  12. CYTOXAN [Concomitant]
     Dosage: 40 MG/KG

REACTIONS (15)
  - Death [Fatal]
  - Leukaemia recurrent [Unknown]
  - Acute myeloid leukaemia [Unknown]
  - Malignant neoplasm progression [Unknown]
  - Toxicity to various agents [Unknown]
  - Pyrexia [Unknown]
  - Decreased appetite [Unknown]
  - Rash [Not Recovered/Not Resolved]
  - Vomiting [Unknown]
  - Diarrhoea [Unknown]
  - Capillary leak syndrome [Not Recovered/Not Resolved]
  - Mediastinitis [Unknown]
  - Fibrosis [Unknown]
  - Cardiac arrest [Unknown]
  - Bradycardia [Recovered/Resolved]
